FAERS Safety Report 13961267 (Version 2)
Quarter: 2017Q4

REPORT INFORMATION
  Report Type: Report from Study
  Country: US (occurrence: US)
  Receive Date: 20170912
  Receipt Date: 20171026
  Transmission Date: 20180320
  Serious: No
  Sender: FDA-Public Use
  Company Number: PHEH2017US029163

PATIENT
  Sex: Female

DRUGS (1)
  1. GLEEVEC [Suspect]
     Active Substance: IMATINIB MESYLATE
     Indication: PRODUCT USED FOR UNKNOWN INDICATION
     Route: 065

REACTIONS (1)
  - Dysphagia [Unknown]
